FAERS Safety Report 4469730-X (Version None)
Quarter: 2004Q4

REPORT INFORMATION
  Report Type: 
  Country: None (occurrence: None)
  Receive Date: 20041008
  Receipt Date: 20040930
  Transmission Date: 20050328
  Serious: Yes (Death)
  Sender: FDA-Public Use
  Company Number: US-JNJFOC-20040306766

PATIENT
  Sex: Male

DRUGS (2)
  1. DURAGESIC [Suspect]
     Route: 062
     Dates: end: 20040207
  2. ON SEVERAL OTHER MEDICATIONS (UNKNOWN) [Concomitant]

REACTIONS (6)
  - DYSPNOEA [None]
  - FEELING ABNORMAL [None]
  - HYPERSOMNIA [None]
  - OVERDOSE [None]
  - PHARMACEUTICAL PRODUCT COMPLAINT [None]
  - TACHYCARDIA [None]
